FAERS Safety Report 11382559 (Version 1)
Quarter: 2015Q3

REPORT INFORMATION
  Report Type: Report from Study
  Country: US (occurrence: US)
  Receive Date: 20150814
  Receipt Date: 20150814
  Transmission Date: 20151125
  Serious: Yes (Death)
  Sender: FDA-Public Use
  Company Number: US-ASTELLAS-2015US021154

PATIENT
  Sex: Male

DRUGS (1)
  1. ERLOTINIB [Suspect]
     Active Substance: ERLOTINIB
     Indication: NASOPHARYNGEAL CANCER
     Route: 048

REACTIONS (4)
  - Conjunctivitis [Unknown]
  - Fatigue [Unknown]
  - Death [Fatal]
  - Off label use [Unknown]
